FAERS Safety Report 5065117-X (Version None)
Quarter: 2006Q3

REPORT INFORMATION
  Report Type: 
  Country: None (occurrence: None)
  Receive Date: 20060727
  Receipt Date: 20060727
  Transmission Date: 20061208
  Serious: Yes (Hospitalization)
  Sender: FDA-Public Use
  Company Number: None

PATIENT
  Sex: Female
  Weight: 68.4932 kg

DRUGS (3)
  1. CARBOPLATIN [Suspect]
     Indication: NON-SMALL CELL LUNG CANCER
     Dosage: AUC= 5   Q 21 DAYS D1  IV
     Route: 042
     Dates: start: 20040414
  2. IRINOTECAN HCL [Suspect]
     Indication: NON-SMALL CELL LUNG CANCER
     Dosage: 50MG/M2   Q 21 DAYS D1, D8  IV
     Route: 042
     Dates: start: 20040414
  3. IRINOTECAN HCL [Suspect]
     Indication: NON-SMALL CELL LUNG CANCER
     Dosage: 50MG/M2   Q 21 DAYS D1, D8  IV
     Route: 042
     Dates: start: 20040421

REACTIONS (4)
  - CHEST X-RAY ABNORMAL [None]
  - MALIGNANT NEOPLASM PROGRESSION [None]
  - NON-SMALL CELL LUNG CANCER [None]
  - PNEUMONIA [None]
